FAERS Safety Report 15756519 (Version 1)
Quarter: 2018Q4

REPORT INFORMATION
  Report Type: Spontaneous
  Country: US (occurrence: US)
  Receive Date: 20181222
  Receipt Date: 20181222
  Transmission Date: 20190205
  Serious: Yes (Other)
  Sender: FDA-Public Use
  Company Number: None

PATIENT
  Sex: Male
  Weight: 90.45 kg

DRUGS (16)
  1. SYMBICORT [Concomitant]
     Active Substance: BUDESONIDE\FORMOTEROL FUMARATE DIHYDRATE
  2. ATORVASTATIN [Concomitant]
     Active Substance: ATORVASTATIN
  3. CARVEDILOL. [Concomitant]
     Active Substance: CARVEDILOL
  4. METFORMIN [Concomitant]
     Active Substance: METFORMIN HYDROCHLORIDE
  5. RAPAFLO [Concomitant]
     Active Substance: SILODOSIN
  6. ASPIRIN. [Concomitant]
     Active Substance: ASPIRIN
  7. CLOPIDOGREL [Concomitant]
     Active Substance: CLOPIDOGREL BISULFATE
  8. RAMIPRIL. [Concomitant]
     Active Substance: RAMIPRIL
  9. ROBAXIN [Suspect]
     Active Substance: METHOCARBAMOL
     Indication: BACK PAIN
     Dosage: ?          QUANTITY:1 TABLET(S);?
     Route: 048
     Dates: start: 20130401, end: 20181112
  10. TOPIRAMATE. [Concomitant]
     Active Substance: TOPIRAMATE
  11. PANTOPRAZOLE [Concomitant]
     Active Substance: PANTOPRAZOLE
  12. GABAPENTIN. [Concomitant]
     Active Substance: GABAPENTIN
  13. D-3 [Concomitant]
     Active Substance: CHOLECALCIFEROL
  14. HYDROCODON-ACETAMINOPHEN [Concomitant]
     Active Substance: ACETAMINOPHEN\HYDROCODONE
  15. FINASTERIDE. [Concomitant]
     Active Substance: FINASTERIDE
  16. CENTRUM SILVER [Concomitant]
     Active Substance: MINERALS\VITAMINS

REACTIONS (3)
  - Muscle spasms [None]
  - Diarrhoea [None]
  - Internal haemorrhage [None]
